FAERS Safety Report 18658842 (Version 1)
Quarter: 2020Q4

REPORT INFORMATION
  Report Type: Report from Study
  Country: None (occurrence: LT)
  Receive Date: 20201223
  Receipt Date: 20201223
  Transmission Date: 20210114
  Serious: Yes (Hospitalization)
  Sender: FDA-Public Use
  Company Number: LT-ABBVIE-20P-234-3699768-00

PATIENT
  Age: 53 Year
  Sex: Male
  Weight: 96 kg

DRUGS (4)
  1. RISANKIZUMAB [Suspect]
     Active Substance: RISANKIZUMAB
     Indication: PSORIATIC ARTHROPATHY
     Route: 058
     Dates: start: 20200701
  2. NAPROXEN. [Concomitant]
     Active Substance: NAPROXEN
     Indication: PSORIATIC ARTHROPATHY
     Route: 048
     Dates: start: 20190819
  3. PLACEBO [Suspect]
     Active Substance: UNSPECIFIED INGREDIENT
     Indication: PSORIATIC ARTHROPATHY
     Dosage: WEEK 24
     Route: 058
     Dates: start: 20200604, end: 20200604
  4. RISANKIZUMAB [Suspect]
     Active Substance: RISANKIZUMAB
     Indication: PSORIATIC ARTHROPATHY
     Dosage: WEEK 0,4,16
     Route: 058
     Dates: start: 20191219, end: 20200604

REACTIONS (1)
  - Tonsillitis [Recovered/Resolved]

NARRATIVE: CASE EVENT DATE: 20201202
